FAERS Safety Report 5841879-6 (Version None)
Quarter: 2008Q3

REPORT INFORMATION
  Report Type: 
  Country: None (occurrence: None)
  Receive Date: 20080811
  Receipt Date: 20080811
  Transmission Date: 20090109
  Serious: Yes (Death)
  Sender: FDA-Public Use
  Company Number: None

PATIENT
  Age: 22 Year
  Sex: Male
  Weight: 68.0396 kg

DRUGS (1)
  1. METHADONE HCL [Suspect]
     Indication: DRUG DIVERSION
     Dosage: DIVERTION
     Dates: start: 20080302, end: 20080302

REACTIONS (1)
  - DEATH [None]
